FAERS Safety Report 8776735 (Version 3)
Quarter: 2012Q4

REPORT INFORMATION
  Report Type: 
  Country: US (occurrence: US)
  Receive Date: 20120910
  Receipt Date: 20121015
  Transmission Date: 20130627
  Serious: Yes (Other)
  Sender: FDA-Public Use
  Company Number: US-PFIZER INC-2012221496

PATIENT
  Age: 43 Year
  Sex: Female

DRUGS (2)
  1. GEODON [Suspect]
     Dosage: 80mg, 3 caps after evening meal
     Dates: end: 201208
  2. ABILIFY [Concomitant]
     Dosage: UNK

REACTIONS (4)
  - Psychotic disorder [Unknown]
  - Hallucination [Unknown]
  - Withdrawal syndrome [Unknown]
  - Abnormal behaviour [Unknown]
